FAERS Safety Report 7584281-1 (Version None)
Quarter: 2011Q2

REPORT INFORMATION
  Report Type: 
  Country: None (occurrence: None)
  Receive Date: 20110630
  Receipt Date: 20110624
  Transmission Date: 20111010
  Serious: Yes (Disabling, Other)
  Sender: FDA-Public Use
  Company Number: US-MYLANLABS-2011S1013228

PATIENT
  Age: 42 Year
  Sex: Female
  Weight: 104.33 kg

DRUGS (6)
  1. AMITRIPTYLINE HCL [Suspect]
     Indication: IRRITABLE BOWEL SYNDROME
     Route: 048
     Dates: start: 19930101
  2. LEVBID [Suspect]
     Indication: NAUSEA
     Route: 048
     Dates: end: 19930101
  3. XANAX [Suspect]
     Indication: IRRITABLE BOWEL SYNDROME
     Route: 048
     Dates: start: 19930101
  4. TIGAN [Suspect]
     Indication: NAUSEA
     Route: 048
  5. ELAVIL [Suspect]
     Indication: IRRITABLE BOWEL SYNDROME
     Dates: start: 19930101, end: 19930101
  6. HYOMAX [Suspect]
     Indication: NAUSEA
     Route: 048

REACTIONS (9)
  - INSOMNIA [None]
  - MENTAL IMPAIRMENT [None]
  - SINUSITIS [None]
  - DISTURBANCE IN ATTENTION [None]
  - HYPERTENSION [None]
  - BREAST CANCER [None]
  - NAUSEA [None]
  - FIBROMYALGIA [None]
  - HYPERVENTILATION [None]
